FAERS Safety Report 21744012 (Version 1)
Quarter: 2022Q4

REPORT INFORMATION
  Report Type: Spontaneous
  Country: GB (occurrence: GB)
  Receive Date: 20221217
  Receipt Date: 20221217
  Transmission Date: 20230113
  Serious: Yes (Other)
  Sender: FDA-Public Use
  Company Number: GB-ASTELLAS-2022US043809

PATIENT
  Sex: Male

DRUGS (1)
  1. ISAVUCONAZOLE [Suspect]
     Active Substance: ISAVUCONAZOLE
     Indication: Product used for unknown indication
     Dosage: UNK, UNKNOWN FREQ.
     Route: 065

REACTIONS (4)
  - Blindness [Unknown]
  - Central nervous system infection [Unknown]
  - Cerebral haemorrhage [Unknown]
  - Drug level below therapeutic [Unknown]
